FAERS Safety Report 4861293-X (Version None)
Quarter: 2005Q4

REPORT INFORMATION
  Report Type: 
  Country: None (occurrence: None)
  Receive Date: 20051220
  Receipt Date: 20050913
  Transmission Date: 20060501
  Serious: Yes (Other)
  Sender: FDA-Public Use
  Company Number: US-MERCK-0509USA01863

PATIENT
  Age: 70 Year
  Sex: Male
  Weight: 94 kg

DRUGS (2)
  1. VIOXX [Suspect]
     Indication: OSTEOARTHRITIS
     Route: 048
     Dates: start: 20000101, end: 20040101
  2. CARDURA [Suspect]
     Route: 065

REACTIONS (19)
  - AGITATION [None]
  - AMNESIA [None]
  - ANGER [None]
  - CEREBROVASCULAR ACCIDENT [None]
  - DEMENTIA [None]
  - DEMENTIA OF THE ALZHEIMER'S TYPE, WITH DELIRIUM [None]
  - DEPRESSION [None]
  - DIZZINESS [None]
  - DRUG INEFFECTIVE [None]
  - GENERAL PHYSICAL CONDITION ABNORMAL [None]
  - ISCHAEMIC STROKE [None]
  - JOINT EFFUSION [None]
  - MENTAL DISORDER [None]
  - OSTEOARTHRITIS [None]
  - PAIN IN EXTREMITY [None]
  - RHINITIS ALLERGIC [None]
  - SINUSITIS [None]
  - SYNCOPE [None]
  - VENTRICULAR TACHYCARDIA [None]
